FAERS Safety Report 24143327 (Version 4)
Quarter: 2024Q3

REPORT INFORMATION
  Report Type: Spontaneous
  Country: US (occurrence: US)
  Receive Date: 20240726
  Receipt Date: 20240823
  Transmission Date: 20241017
  Serious: Yes (Hospitalization)
  Sender: ALEXION PHARMACEUTICALS
  Company Number: US-AstraZeneca-CH-00669375A

PATIENT
  Sex: Male
  Weight: 102 kg

DRUGS (2)
  1. ULTOMIRIS [Suspect]
     Active Substance: RAVULIZUMAB-CWVZ
     Indication: Product used for unknown indication
     Dosage: 300 UNK
     Route: 042
  2. VOYDEYA [Suspect]
     Active Substance: DANICOPAN
     Indication: Product used for unknown indication
     Dosage: UNK
     Route: 065

REACTIONS (2)
  - Full blood count decreased [Recovering/Resolving]
  - Road traffic accident [Recovering/Resolving]
